FAERS Safety Report 25995344 (Version 1)
Quarter: 2025Q4

REPORT INFORMATION
  Report Type: Report from Study
  Country: US (occurrence: US)
  Receive Date: 20251104
  Receipt Date: 20251104
  Transmission Date: 20260117
  Serious: Yes (Hospitalization)
  Sender: ABBVIE
  Company Number: US-ABBVIE-6526003

PATIENT
  Age: 21 Year
  Sex: Male

DRUGS (3)
  1. SKYRIZI [Suspect]
     Active Substance: RISANKIZUMAB-RZAA
     Indication: Colitis ulcerative
     Route: 058
     Dates: start: 20241215
  2. PREDNISONE [Concomitant]
     Active Substance: PREDNISONE
     Indication: Product used for unknown indication
  3. PREDNISONE [Concomitant]
     Active Substance: PREDNISONE
     Indication: Product used for unknown indication

REACTIONS (7)
  - Discomfort [Not Recovered/Not Resolved]
  - Colitis ulcerative [Recovering/Resolving]
  - Faecal calprotectin abnormal [Unknown]
  - Abdominal distension [Not Recovered/Not Resolved]
  - Anxiety [Recovering/Resolving]
  - Blood test abnormal [Unknown]
  - Faeces pale [Unknown]

NARRATIVE: CASE EVENT DATE: 20250101
